FAERS Safety Report 8594858-2 (Version None)
Quarter: 2012Q3

REPORT INFORMATION
  Report Type: 
  Country: None (occurrence: None)
  Receive Date: 20120815
  Receipt Date: 20120807
  Transmission Date: 20120928
  Serious: Yes (Other)
  Sender: FDA-Public Use
  Company Number: US-UCBSA-059587

PATIENT
  Age: 35 Year
  Sex: Male
  Weight: 82.1 kg

DRUGS (2)
  1. ASACOL [Concomitant]
     Dosage: 400 MG; 6 TABLETS ,TQ MONTH
     Route: 048
  2. CIMZIA [Suspect]
     Indication: CROHN'S DISEASE
     Route: 058
     Dates: start: 20120119, end: 20120611

REACTIONS (2)
  - RASH [None]
  - TESTIS CANCER [None]
